FAERS Safety Report 7989459-0 (Version None)
Quarter: 2011Q4

REPORT INFORMATION
  Report Type: 
  Country: None (occurrence: None)
  Receive Date: 20111219
  Receipt Date: 20111219
  Transmission Date: 20120403
  Serious: Yes (Hospitalization)
  Sender: FDA-Public Use
  Company Number: IT-SANOFI-AVENTIS-2011SA079211

PATIENT
  Age: 77 Year
  Sex: Male

DRUGS (8)
  1. ALDACTONE [Suspect]
     Route: 048
     Dates: start: 20070101, end: 20111030
  2. CARVEDILOL [Suspect]
     Route: 048
     Dates: start: 20070101, end: 20111030
  3. MAGNESIUM HYDROXIDE TAB [Concomitant]
     Indication: THROMBOSIS PROPHYLAXIS
     Route: 048
  4. PLAVIX [Concomitant]
     Indication: THROMBOSIS PROPHYLAXIS
  5. ESKIM [Concomitant]
     Route: 048
  6. LASIX [Suspect]
     Route: 048
     Dates: start: 20070101, end: 20111030
  7. RANITIDINE [Suspect]
     Route: 048
     Dates: start: 20070101, end: 20111030
  8. ALLOPURINOL [Suspect]
     Route: 048
     Dates: start: 20070101, end: 20111030

REACTIONS (3)
  - BRADYCARDIA [None]
  - SYNCOPE [None]
  - HYPONATRAEMIA [None]
